FAERS Safety Report 19717553 (Version 1)
Quarter: 2021Q3

REPORT INFORMATION
  Report Type: Spontaneous
  Country: US (occurrence: US)
  Receive Date: 20210818
  Receipt Date: 20210818
  Transmission Date: 20211014
  Serious: No
  Sender: FDA-Public Use
  Company Number: US-ASTRAZENECA-2021A646886

PATIENT
  Age: 845 Month
  Sex: Female
  Weight: 106.6 kg

DRUGS (1)
  1. BYDUREON BCISE [Suspect]
     Active Substance: EXENATIDE
     Indication: WEIGHT DECREASED
     Route: 058
     Dates: start: 202106

REACTIONS (4)
  - Injection site pruritus [Recovered/Resolved]
  - Off label use [Unknown]
  - Injection site erythema [Recovered/Resolved]
  - Injection site mass [Recovering/Resolving]

NARRATIVE: CASE EVENT DATE: 202106
